FAERS Safety Report 5880937-7 (Version None)
Quarter: 2008Q3

REPORT INFORMATION
  Report Type: 
  Country: None (occurrence: None)
  Receive Date: 20080912
  Receipt Date: 20080610
  Transmission Date: 20090109
  Serious: No
  Sender: FDA-Public Use
  Company Number: US-ABBOTT-08P-163-0457181-00

PATIENT
  Sex: Female
  Weight: 93.524 kg

DRUGS (15)
  1. HUMIRA [Suspect]
     Indication: PSORIASIS
     Route: 050
     Dates: start: 20080310
  2. ESTROGENS CONJUGATED [Concomitant]
     Indication: DRUG USE FOR UNKNOWN INDICATION
     Route: 048
  3. ATORVASTATIN CALCIUM [Concomitant]
     Indication: DRUG USE FOR UNKNOWN INDICATION
     Route: 048
  4. METOPROLOL SUCCINATE [Concomitant]
     Indication: HEART RATE IRREGULAR
     Route: 048
  5. METOPROLOL SUCCINATE [Concomitant]
     Indication: HEART VALVE INCOMPETENCE
  6. MORPHINE [Concomitant]
     Indication: BONE PAIN
     Route: 048
  7. GABAPENTIN [Concomitant]
     Indication: PAIN
     Route: 048
  8. ESOMEPRAZOLE MAGNESIUM [Concomitant]
     Indication: PROPHYLAXIS AGAINST GASTROINTESTINAL ULCER
     Route: 048
  9. MAXZIDE [Concomitant]
     Indication: MIDDLE EAR EFFUSION
     Dosage: 37.5 TO 25, ONE DAILY
     Route: 048
  10. DIPROPHYLLINE [Concomitant]
     Indication: SINUS DISORDER
     Route: 045
  11. ZOLPIDEM TARTRATE [Concomitant]
     Indication: INSOMNIA
  12. ANCOVERT [Concomitant]
     Indication: MOTION SICKNESS
     Route: 048
  13. ONDANSETRON [Concomitant]
     Indication: NAUSEA
     Route: 048
  14. HYDROMORPHONE HYDROCHLORIDE [Concomitant]
     Indication: BREAKTHROUGH PAIN
     Dosage: 2 MG; 1 TABLET EVERY 6-8 HOURS AS NEEDED
     Route: 048
  15. ACETAMINOPHEN [Concomitant]
     Indication: DRUG USE FOR UNKNOWN INDICATION
     Route: 048

REACTIONS (8)
  - BLADDER DISORDER [None]
  - BRONCHITIS [None]
  - DYSPHONIA [None]
  - FUNGAL INFECTION [None]
  - INJECTION SITE PAIN [None]
  - MICTURITION URGENCY [None]
  - SINUSITIS [None]
  - URINARY RETENTION [None]
